FAERS Safety Report 9198459 (Version 1)
Quarter: 2013Q1

REPORT INFORMATION
  Report Type: Spontaneous
  Country: TR (occurrence: TR)
  Receive Date: 20130329
  Receipt Date: 20130329
  Transmission Date: 20140127
  Serious: Yes (Other)
  Sender: FDA-Public Use
  Company Number: TR-ACCORD-016964

PATIENT
  Age: 59 Year
  Sex: Female

DRUGS (2)
  1. QUETIAPINE FUMARATE [Suspect]
     Indication: PSYCHOTIC DISORDER
     Dosage: FOR ONE YEAR
  2. MEMANTINE [Concomitant]
     Indication: DEMENTIA
     Dosage: FOR THREE YEARS

REACTIONS (2)
  - Floppy iris syndrome [Recovering/Resolving]
  - Off label use [Unknown]
